FAERS Safety Report 13259366 (Version 1)
Quarter: 2017Q1

REPORT INFORMATION
  Report Type: Spontaneous
  Country: US (occurrence: US)
  Receive Date: 20170222
  Receipt Date: 20170222
  Transmission Date: 20170428
  Serious: No
  Sender: FDA-Public Use
  Company Number: US-PFIZER INC-2017076785

PATIENT
  Sex: Male

DRUGS (2)
  1. EFFEXOR XR [Suspect]
     Active Substance: VENLAFAXINE HYDROCHLORIDE
     Dosage: 225 MG, 1X/DAY
  2. EFFEXOR XR [Suspect]
     Active Substance: VENLAFAXINE HYDROCHLORIDE
     Dosage: 300 MG, 1X/DAY
     Dates: start: 201612

REACTIONS (3)
  - Muscle twitching [Unknown]
  - Prescribed overdose [Unknown]
  - Vision blurred [Unknown]

NARRATIVE: CASE EVENT DATE: 201612
